FAERS Safety Report 5375947-2 (Version None)
Quarter: 2007Q2

REPORT INFORMATION
  Report Type: 
  Country: None (occurrence: None)
  Receive Date: 20070627
  Receipt Date: 20070627
  Transmission Date: 20071010
  Serious: Yes (Hospitalization)
  Sender: FDA-Public Use
  Company Number: None

PATIENT
  Age: 75 Year
  Sex: Male
  Weight: 88.6 kg

DRUGS (11)
  1. CIPROFLOXACIN [Suspect]
     Indication: PNEUMONIA ASPIRATION
     Dosage: 500 MG BID PO
     Route: 048
  2. XOPENEX [Concomitant]
  3. ADVAIR DISKUS 500/50 [Concomitant]
  4. ZOCOR [Concomitant]
  5. METOPROLOL SUCCINATE [Concomitant]
  6. ASPIRIN [Concomitant]
  7. TYLENOL [Concomitant]
  8. GABAPENTIN [Concomitant]
  9. ZOSYN [Concomitant]
  10. ZOLOFT [Concomitant]
  11. SPIRIVA [Concomitant]

REACTIONS (3)
  - ASPARTATE AMINOTRANSFERASE INCREASED [None]
  - BLOOD ALKALINE PHOSPHATASE INCREASED [None]
  - DIARRHOEA [None]
